FAERS Safety Report 8104722-0 (Version None)
Quarter: 2012Q1

REPORT INFORMATION
  Report Type: 
  Country: None (occurrence: None)
  Receive Date: 20120130
  Receipt Date: 20120124
  Transmission Date: 20120608
  Serious: Yes (Other)
  Sender: FDA-Public Use
  Company Number: BE-PFIZER INC-2012019998

PATIENT
  Age: 61 Year
  Sex: Male

DRUGS (2)
  1. MEDROL [Suspect]
     Indication: RETROPERITONEAL FIBROSIS
     Dosage: 32 MG, 2X/DAY
     Route: 048
     Dates: start: 19960501, end: 19960601
  2. MEDROL [Suspect]
     Dosage: 32 MG, 1X/DAY
     Route: 048
     Dates: start: 19960101, end: 19980101

REACTIONS (13)
  - VISUAL ACUITY REDUCED [None]
  - MUSCLE DISORDER [None]
  - TINNITUS [None]
  - DIABETES MELLITUS [None]
  - BONE PAIN [None]
  - SLEEP DISORDER [None]
  - PANIC REACTION [None]
  - DRY MOUTH [None]
  - NEPHRECTOMY [None]
  - RESPIRATORY DISORDER [None]
  - DISTURBANCE IN ATTENTION [None]
  - DEPRESSION [None]
  - BACK DISORDER [None]
